FAERS Safety Report 6721151-2 (Version None)
Quarter: 2010Q2

REPORT INFORMATION
  Report Type: 
  Country: None (occurrence: None)
  Receive Date: 20100510
  Receipt Date: 20100422
  Transmission Date: 20101027
  Serious: Yes (Other)
  Sender: FDA-Public Use
  Company Number: CV20100204

PATIENT
  Age: 68 Year
  Sex: Female

DRUGS (3)
  1. PROPOFOL [Suspect]
     Indication: INDUCTION OF ANAESTHESIA
     Dosage: 140 MG
     Route: 042
  2. FENTANYL [Concomitant]
  3. VECURONIUM BROMIDE [Concomitant]

REACTIONS (3)
  - ARTERIOSPASM CORONARY [None]
  - HYPOTENSION [None]
  - PRINZMETAL ANGINA [None]
